FAERS Safety Report 23947847 (Version 2)
Quarter: 2024Q3

REPORT INFORMATION
  Report Type: Spontaneous
  Country: US (occurrence: US)
  Receive Date: 20240606
  Receipt Date: 20240802
  Transmission Date: 20241017
  Serious: No
  Sender: BAUSCH AND LOMB
  Company Number: US-BAUSCHBL-2024BNL028083

PATIENT
  Age: 77 Year
  Sex: Male

DRUGS (2)
  1. ZIRGAN [Suspect]
     Active Substance: GANCICLOVIR
     Indication: Conjunctivitis
     Route: 047
  2. ARTIFICIAL TEARS (CARMELLOSE SODIUM) [Concomitant]
     Indication: Product used for unknown indication
     Route: 065

REACTIONS (5)
  - Product package associated injury [Unknown]
  - Product use complaint [Unknown]
  - Product complaint [Unknown]
  - Off label use [Unknown]
  - Product use in unapproved indication [Unknown]
